FAERS Safety Report 8869630 (Version 1)
Quarter: 2012Q4

REPORT INFORMATION
  Report Type: 
  Country: US (occurrence: US)
  Receive Date: 20121028
  Receipt Date: 20121028
  Transmission Date: 20130627
  Serious: No
  Sender: FDA-Public Use
  Company Number: US-BAYER-2012-112256

PATIENT
  Age: 89 Year
  Sex: Female
  Weight: 89.8 kg

DRUGS (2)
  1. ALEVE CAPLET/TABLET,MIDOL EXTENDED RELIEF CAPLET [Suspect]
     Indication: PAIN RELIEF
     Dosage: 2 DF, PRN
     Route: 048
     Dates: start: 200810
  2. BLOOD PRESSURE MEDICATION (NOS) [Concomitant]

REACTIONS (2)
  - Abdominal discomfort [Recovered/Resolved]
  - Neck pain [None]
